FAERS Safety Report 9409445 (Version 1)
Quarter: 2013Q3

REPORT INFORMATION
  Report Type: Spontaneous
  Country: US (occurrence: US)
  Receive Date: 20130719
  Receipt Date: 20130719
  Transmission Date: 20140515
  Serious: No
  Sender: FDA-Public Use
  Company Number: US-MYLANLABS-2013S1010548

PATIENT
  Sex: Female

DRUGS (3)
  1. VALSARTAN/HYDROCHLOORTHIAZIDE [Suspect]
     Dates: start: 2012
  2. IBUPROFEN [Concomitant]
  3. AMBIEN [Concomitant]

REACTIONS (1)
  - Hypotension [Not Recovered/Not Resolved]
